FAERS Safety Report 14813731 (Version 1)
Quarter: 2018Q2

REPORT INFORMATION
  Report Type: Spontaneous
  Country: US (occurrence: US)
  Receive Date: 20180426
  Receipt Date: 20180426
  Transmission Date: 20180711
  Serious: No
  Sender: FDA-Public Use
  Company Number: US-PFIZER INC-2018165693

PATIENT
  Age: 34 Year
  Sex: Male
  Weight: 95.25 kg

DRUGS (1)
  1. VIAGRA [Suspect]
     Active Substance: SILDENAFIL CITRATE
     Indication: ERECTILE DYSFUNCTION
     Dosage: BELIEVES IT WAS 100MG 1 BLUE PILL AS NEEDED
     Route: 048

REACTIONS (2)
  - Penis disorder [Not Recovered/Not Resolved]
  - Painful erection [Unknown]

NARRATIVE: CASE EVENT DATE: 201802
